FAERS Safety Report 24087318 (Version 3)
Quarter: 2024Q4

REPORT INFORMATION
  Report Type: Report from Study
  Country: US (occurrence: US)
  Receive Date: 20240714
  Receipt Date: 20241009
  Transmission Date: 20250115
  Serious: Yes (Hospitalization)
  Sender: SANOFI AVENTIS
  Company Number: US-REGENERON PHARMACEUTICALS, INC.-2024-086923

PATIENT
  Age: 75 Year
  Sex: Female
  Weight: 46.7 kg

DRUGS (62)
  1. UBAMATAMAB [Suspect]
     Active Substance: UBAMATAMAB
     Indication: Ovarian cancer
     Dosage: 1 MG, 1X
     Route: 042
     Dates: start: 20240617, end: 20240617
  2. UBAMATAMAB [Suspect]
     Active Substance: UBAMATAMAB
     Dosage: 20 MG, SPLIT DOSE, (10 MG ON C1D8/10 MG ON C1D9)
     Route: 042
     Dates: start: 20240624, end: 20240625
  3. UBAMATAMAB [Suspect]
     Active Substance: UBAMATAMAB
     Dosage: 50 MG, QW
     Route: 042
     Dates: start: 20240702
  4. UBAMATAMAB [Suspect]
     Active Substance: UBAMATAMAB
     Dosage: 800 MG, QD
     Route: 042
     Dates: start: 20240904, end: 20240904
  5. UBAMATAMAB [Suspect]
     Active Substance: UBAMATAMAB
     Dosage: 1 MG, QD
     Route: 042
     Dates: start: 20240911, end: 20240911
  6. UBAMATAMAB [Suspect]
     Active Substance: UBAMATAMAB
     Dosage: 800 MG, WEEKLY
     Route: 042
     Dates: start: 20240710, end: 20240821
  7. UBAMATAMAB [Suspect]
     Active Substance: UBAMATAMAB
     Dosage: UNK
     Dates: start: 20240911
  8. SARILUMAB [Suspect]
     Active Substance: SARILUMAB
     Indication: Ovarian cancer
     Dosage: 350 MG, 1X
     Route: 042
     Dates: start: 20240617, end: 20240617
  9. LIPITOR [Concomitant]
     Active Substance: ATORVASTATIN CALCIUM
     Indication: Hyperlipidaemia
     Dosage: 80 MG, QD
     Route: 048
     Dates: start: 20230622
  10. CALCIUM CITRATE [Concomitant]
     Active Substance: CALCIUM CITRATE
     Indication: Osteopenia
     Dosage: 250 MG, QD
     Route: 048
     Dates: start: 20231026
  11. CALCIUM CITRATE [Concomitant]
     Active Substance: CALCIUM CITRATE
     Indication: Osteoporosis
  12. PEPCID [Concomitant]
     Active Substance: FAMOTIDINE
     Indication: Premedication
     Dosage: 20 MG, PRE INFUSION
     Route: 048
     Dates: start: 20240617
  13. PEPCID [Concomitant]
     Active Substance: FAMOTIDINE
     Indication: Gastrooesophageal reflux disease
     Dosage: 20 MG, QD
     Route: 048
     Dates: start: 20230331
  14. PEPCID [Concomitant]
     Active Substance: FAMOTIDINE
     Indication: Prophylaxis
     Dosage: 20 MG, PRN
     Route: 042
     Dates: start: 20240617
  15. ADVIL [Concomitant]
     Active Substance: IBUPROFEN
     Indication: Pain management
     Dosage: 600 MG, PRE INFUSION
     Route: 048
     Dates: start: 20240617
  16. ADVIL [Concomitant]
     Active Substance: IBUPROFEN
     Indication: Premedication
     Dosage: 600 MG, AS NECESSARY
     Route: 048
     Dates: start: 20230823
  17. ADVIL [Concomitant]
     Active Substance: IBUPROFEN
     Indication: Headache
     Dosage: 600 MG, PRN
     Route: 048
     Dates: start: 20240617
  18. TOPROL XL [Concomitant]
     Active Substance: METOPROLOL SUCCINATE
     Indication: Hypertension
     Dosage: 100 MG, QD
     Route: 048
     Dates: start: 20230816
  19. ZOFRAN [Concomitant]
     Active Substance: ONDANSETRON HYDROCHLORIDE
     Indication: Nausea
     Dosage: 4 MG, PRN
     Route: 048
     Dates: start: 20230825
  20. TOPAMAX [Concomitant]
     Active Substance: TOPIRAMATE
     Indication: Restless legs syndrome
     Dosage: 100 MG, BID
     Route: 048
     Dates: start: 20221219
  21. EFFEXOR [Concomitant]
     Active Substance: VENLAFAXINE HYDROCHLORIDE
     Indication: Anxiety
     Dosage: 150 MG, QD
     Route: 048
     Dates: start: 20230627
  22. TYLENOL [Concomitant]
     Active Substance: ACETAMINOPHEN
     Indication: Prophylaxis
     Dosage: 650 MG, AS NECESSARY
     Route: 048
     Dates: start: 20240611
  23. OXYCODONE [Concomitant]
     Active Substance: OXYCODONE
     Indication: Cancer pain
     Dosage: 5 MG, PRN
     Route: 048
     Dates: start: 20230908
  24. ATIVAN [Concomitant]
     Active Substance: LORAZEPAM
     Indication: Anxiety
     Dosage: 0.5 MG, PRN
     Route: 048
     Dates: start: 20240603, end: 20240719
  25. REMERON [Concomitant]
     Active Substance: MIRTAZAPINE
     Indication: Insomnia
     Dosage: 7.5 MG, QD
     Route: 048
     Dates: start: 20240119
  26. BENADRYL [Concomitant]
     Active Substance: DIPHENHYDRAMINE HYDROCHLORIDE
     Indication: Premedication
     Dosage: 25 MG, PRN
     Route: 042
     Dates: start: 20240617
  27. BENADRYL [Concomitant]
     Active Substance: DIPHENHYDRAMINE HYDROCHLORIDE
     Indication: Prophylaxis
  28. SINGULAIR [Concomitant]
     Active Substance: MONTELUKAST SODIUM
     Indication: Premedication
     Dosage: 10 MG, PRN
     Route: 048
     Dates: start: 20240615
  29. SINGULAIR [Concomitant]
     Active Substance: MONTELUKAST SODIUM
     Indication: Prophylaxis
  30. ZYRTEC [Concomitant]
     Active Substance: CETIRIZINE HYDROCHLORIDE
     Indication: Premedication
     Dosage: 10 MG, PRN
     Route: 048
     Dates: start: 20240615
  31. ZYRTEC [Concomitant]
     Active Substance: CETIRIZINE HYDROCHLORIDE
     Indication: Prophylaxis
  32. NEXIUM [Concomitant]
     Active Substance: ESOMEPRAZOLE MAGNESIUM
     Indication: Gastrooesophageal reflux disease
     Dosage: 40 MG, QD
     Route: 048
     Dates: start: 20240402, end: 20240617
  33. REGLAN [Concomitant]
     Active Substance: METOCLOPRAMIDE HYDROCHLORIDE
     Indication: Gastrooesophageal reflux disease
     Dosage: 10 MG, BID
     Route: 048
     Dates: start: 20240402, end: 20240702
  34. AMBIEN [Concomitant]
     Active Substance: ZOLPIDEM TARTRATE
     Indication: Insomnia
     Dosage: 5 MG, QD
     Route: 048
     Dates: start: 20231116, end: 20240619
  35. SIMETHICONE (DIMETHICONE) [Concomitant]
     Active Substance: DIMETHICONE
     Indication: Premedication
     Dosage: 80 MG, PRN
     Route: 048
     Dates: start: 20240617, end: 20240619
  36. DESYREL [Concomitant]
     Active Substance: TRAZODONE HYDROCHLORIDE
     Indication: Insomnia
     Dosage: 100 MG, PRN
     Route: 048
     Dates: start: 20230130
  37. MIRAPEX [Concomitant]
     Active Substance: PRAMIPEXOLE DIHYDROCHLORIDE
     Indication: Gastrooesophageal reflux disease
     Dosage: 0.5 MG, QD
     Route: 048
     Dates: start: 20230627, end: 20240619
  38. MIRAPEX [Concomitant]
     Active Substance: PRAMIPEXOLE DIHYDROCHLORIDE
     Indication: Restless legs syndrome
  39. POLYETHYLENE GLYCOL 3350 [Concomitant]
     Active Substance: POLYETHYLENE GLYCOL 3350
     Indication: Constipation
     Dosage: 17 G, PRN
     Route: 048
     Dates: start: 20240402
  40. SENOKOT [Concomitant]
     Active Substance: SENNOSIDES
     Indication: Constipation
     Dosage: 2 DF, QD
     Route: 048
     Dates: start: 20240603
  41. NEXIUM [Concomitant]
     Active Substance: ESOMEPRAZOLE MAGNESIUM
     Indication: Gastrooesophageal reflux disease
     Dosage: 40 MG, QD
     Route: 048
     Dates: start: 20240402, end: 20240617
  42. PEPCID [Concomitant]
     Active Substance: FAMOTIDINE
     Indication: Prophylaxis
     Dosage: 20 MG, PRE INFUSION
     Route: 048
     Dates: start: 20240617
  43. PEPCID [Concomitant]
     Active Substance: FAMOTIDINE
     Indication: Premedication
     Dosage: 20 MG, QD
     Route: 048
     Dates: start: 20230331
  44. PEPCID [Concomitant]
     Active Substance: FAMOTIDINE
     Indication: Gastrooesophageal reflux disease
     Dosage: 20 MG, AS NECESSARY
     Route: 042
     Dates: start: 20240617
  45. PEPCID [Concomitant]
     Active Substance: FAMOTIDINE
     Indication: Premedication
  46. ONDANSETRON [Concomitant]
     Active Substance: ONDANSETRON
     Indication: Nausea
     Dosage: 4 MG, AS NECESSARY
     Route: 048
     Dates: start: 20230825
  47. DIPHENHIST [Concomitant]
     Active Substance: DIPHENHYDRAMINE HYDROCHLORIDE
     Indication: Prophylaxis
     Dosage: 25 MG, AS NECESSARY
     Route: 042
     Dates: start: 20240617
  48. DIPHENHIST [Concomitant]
     Active Substance: DIPHENHYDRAMINE HYDROCHLORIDE
     Indication: Premedication
  49. Allergy relief [Concomitant]
     Indication: Prophylaxis
     Dosage: 10 MG, AS NECESSARY
     Route: 048
     Dates: start: 20240615
  50. Allergy relief [Concomitant]
     Indication: Premedication
  51. OCTAMIDE PFS [Concomitant]
     Active Substance: METOCLOPRAMIDE
     Indication: Gastrooesophageal reflux disease
     Dosage: 10 MG, BID
     Route: 048
     Dates: start: 20240402, end: 20240702
  52. MOTRIN [Concomitant]
     Active Substance: IBUPROFEN
     Indication: Headache
     Dosage: 600 MG, PRE-INFUSION
     Route: 048
     Dates: start: 20240617
  53. MOTRIN [Concomitant]
     Active Substance: IBUPROFEN
     Indication: Pain management
     Dosage: 600 MG, AS NECESSARY
     Route: 048
     Dates: start: 20230823
  54. MOTRIN [Concomitant]
     Active Substance: IBUPROFEN
     Indication: Premedication
     Dosage: 600 MG, AS NECESSARY
     Route: 048
     Dates: start: 20240617
  55. MOTRIN [Concomitant]
     Active Substance: IBUPROFEN
     Dosage: 600 MG, AS NECESSARY
     Route: 048
     Dates: start: 20240617
  56. MOTRIN [Concomitant]
     Active Substance: IBUPROFEN
     Dosage: 600 MG, AS NECESSARY
     Route: 048
     Dates: start: 20230823
  57. SENOKOT [Concomitant]
     Active Substance: SENNOSIDES
     Indication: Constipation
     Dosage: 2 TABLET, QD
     Route: 048
     Dates: start: 20240603
  58. VITAMIN D3 [Concomitant]
     Active Substance: CHOLECALCIFEROL
     Indication: Supplementation therapy
     Dosage: 25 UG, UNKNOWN
     Route: 065
     Dates: start: 20240828
  59. WELLBUTRIN XL [Concomitant]
     Active Substance: BUPROPION HYDROCHLORIDE
     Indication: Anxiety
     Dosage: 150 MG, QD
     Route: 048
     Dates: start: 20240731
  60. PRAVASTATIN [Concomitant]
     Active Substance: PRAVASTATIN
     Indication: Hyperlipidaemia
     Dosage: 80 MG, QD
     Route: 048
  61. MIRALAX [Concomitant]
     Active Substance: POLYETHYLENE GLYCOL 3350
     Indication: Constipation
     Dosage: 17 G, AS NECESSARY
     Route: 048
     Dates: start: 20240402
  62. PRAVACHOL [Concomitant]
     Active Substance: PRAVASTATIN SODIUM
     Indication: Hyperlipidaemia
     Dosage: 80 MG, QD
     Route: 048

REACTIONS (5)
  - Pneumonitis [Recovered/Resolved]
  - Non-cardiac chest pain [Recovered/Resolved]
  - Non-cardiac chest pain [Recovered/Resolved]
  - Abdominal pain [Recovered/Resolved]
  - Abdominal pain [Recovered/Resolved]

NARRATIVE: CASE EVENT DATE: 20240617
